FAERS Safety Report 4989366-1 (Version None)
Quarter: 2006Q2

REPORT INFORMATION
  Report Type: 
  Country: None (occurrence: None)
  Receive Date: 20060426
  Receipt Date: 20060419
  Transmission Date: 20061013
  Serious: Yes (Death)
  Sender: FDA-Public Use
  Company Number: 224293

PATIENT
  Age: 32 Year
  Sex: Female
  Weight: 105.7 kg

DRUGS (9)
  1. XOLAIR [Suspect]
     Indication: ASTHMA
     Dosage: 300 MG, Q2W, SUBCUTANEOUS
     Route: 058
     Dates: start: 20060202, end: 20060320
  2. QVAR 40 [Concomitant]
  3. LORATADINE [Concomitant]
  4. PRILOSEC [Concomitant]
  5. SINGULAIR [Concomitant]
  6. LEXAPRO [Concomitant]
  7. COMBIVENT (ALBUTEROL, ALBUTEROL SULFATE, IPRATROPIUM BROMIDE) [Concomitant]
  8. DAYQUIL (ACETAMINOPHEN, DEXTROMETHORPHAN HYDROBROMIDE, PSEUDOEPHEDRINE [Concomitant]
  9. IMITREX [Concomitant]

REACTIONS (3)
  - MUSCLE SPASMS [None]
  - PHARYNGOLARYNGEAL PAIN [None]
  - PNEUMONIA [None]
